FAERS Safety Report 14253753 (Version 4)
Quarter: 2018Q4

REPORT INFORMATION
  Report Type: Spontaneous
  Country: US (occurrence: US)
  Receive Date: 20171205
  Receipt Date: 20181214
  Transmission Date: 20190204
  Serious: Yes (Hospitalization, Other)
  Sender: FDA-Public Use
  Company Number: US-DSJP-DSU-2017-143165

PATIENT

DRUGS (1)
  1. BENICAR [Suspect]
     Active Substance: OLMESARTAN MEDOXOMIL
     Indication: PRODUCT USED FOR UNKNOWN INDICATION
     Dosage: 40 MG, QD
     Route: 048
     Dates: start: 20080814, end: 20160128

REACTIONS (12)
  - Gastrointestinal disorder [Recovered/Resolved]
  - Gastrooesophageal reflux disease [Not Recovered/Not Resolved]
  - Chronic kidney disease [Not Recovered/Not Resolved]
  - Lipoma [Recovered/Resolved]
  - Diverticulum intestinal [Not Recovered/Not Resolved]
  - Gastritis [Unknown]
  - Haemorrhoids [Unknown]
  - Polyp [Recovered/Resolved]
  - Cholecystitis chronic [Recovered/Resolved]
  - Acute kidney injury [Not Recovered/Not Resolved]
  - Hiatus hernia [Recovered/Resolved]
  - Weight decreased [Not Recovered/Not Resolved]

NARRATIVE: CASE EVENT DATE: 20120411
